FAERS Safety Report 10229909 (Version 1)
Quarter: 2014Q2

REPORT INFORMATION
  Report Type: Report from Study
  Country: AU (occurrence: AU)
  Receive Date: 20140611
  Receipt Date: 20140611
  Transmission Date: 20141212
  Serious: Yes (Other)
  Sender: FDA-Public Use
  Company Number: PHHY2014AU069737

PATIENT
  Sex: Male

DRUGS (6)
  1. CLOZARIL [Suspect]
     Dosage: UNK UKN, UNK
     Route: 048
  2. CLOZARIL [Suspect]
     Dosage: 275 MG, UNK
     Route: 048
  3. CLOZARIL [Suspect]
     Dosage: 400 MG, UNK
     Route: 048
  4. CLOZARIL [Suspect]
     Dosage: 250 MG, UNK
     Route: 048
  5. FLUVOXAMINE [Suspect]
     Dosage: 50 MG, UNK
  6. FLUVOXAMINE [Suspect]
     Dosage: 100 MG, UNK

REACTIONS (2)
  - Loss of consciousness [Unknown]
  - Antipsychotic drug level increased [Unknown]
